FAERS Safety Report 21395459 (Version 1)
Quarter: 2022Q3

REPORT INFORMATION
  Report Type: Spontaneous
  Country: DE (occurrence: DE)
  Receive Date: 20220930
  Receipt Date: 20220930
  Transmission Date: 20221027
  Serious: Yes (Hospitalization)
  Sender: FDA-Public Use
  Company Number: DE-ADRED-04318-01

PATIENT
  Age: 96 Year
  Sex: Male
  Weight: 65 kg

DRUGS (15)
  1. PREDNISOLONE [Suspect]
     Active Substance: PREDNISOLONE
     Indication: Product used for unknown indication
     Dosage: 15 MILLIGRAM DAILY; 5 MG, 3-0-0-0, UNIT DOSE: 15 MG , FREQUENCY : OD, STRENGTH : 5 MG
  2. Macrogol HEXAL plus electrolytes [Concomitant]
     Indication: Product used for unknown indication
     Dosage: 1 DOSAGE FORMS DAILY; 1-0-0-0, UNIT DOSE : 1 DF , FREQUENCY : OD
  3. OXYCODONE [Concomitant]
     Active Substance: OXYCODONE
     Indication: Product used for unknown indication
     Dosage: 45 MILLIGRAM DAILY; 15 MG, 2-0-1-0, UNIT DOSE: 45 MG , FREQUENCY TIME : 1 DAY, STRENGTH : 15 MG
  4. OXYCODONE [Concomitant]
     Active Substance: OXYCODONE
     Dosage: 5 MILLIGRAM DAILY; 5 MG, 1-0-0-0, UNIT DOSE: 5 MG , FREQUENCY : OD , STRENGTH : 5 MG
  5. POTASSIUM [Concomitant]
     Active Substance: POTASSIUM
     Indication: Product used for unknown indication
     Dosage: 1 DOSAGE FORMS DAILY; 1-0-0-0, POTASSIUM LEFT, UNIT DOSE :1 DF
  6. BISOPROLOL [Concomitant]
     Active Substance: BISOPROLOL
     Indication: Product used for unknown indication
     Dosage: 10 MILLIGRAM DAILY; 5 MG, 1-0-1-0, UNIT DOSE: 10 MG , FREQUENCY TIME : 1 DAY
  7. TORSEMIDE [Concomitant]
     Active Substance: TORSEMIDE
     Indication: Product used for unknown indication
     Dosage: 150 MILLIGRAM DAILY; 50 MG, 2-1-0-0, UNIT DOSE: 150 MG , FREQUENCY TIME : 1 DAY, STRENGTH : 50 MG
  8. PANTOPRAZOLE [Concomitant]
     Active Substance: PANTOPRAZOLE
     Indication: Product used for unknown indication
     Dosage: 40 MILLIGRAM DAILY; 40 MG, 0-0-1-0, UNIT DOSE: 40 MG , FREQUENCY : OD, STRENGTH : 40 MG
  9. SIMVASTATIN [Concomitant]
     Active Substance: SIMVASTATIN
     Indication: Product used for unknown indication
     Dosage: 40 MILLIGRAM DAILY; 40 MG, 0-0-1-0, UNIT DOSE: 40 MG , FREQUENCY : OD, STRENGTH : 40 MG
  10. PHENPROCOUMON [Concomitant]
     Active Substance: PHENPROCOUMON
     Indication: Product used for unknown indication
     Dosage: BY VALUE
  11. ALLOPURINOL [Concomitant]
     Active Substance: ALLOPURINOL
     Indication: Product used for unknown indication
     Dosage: 150 MILLIGRAM DAILY; 300 MG, 0-0-0.5-0, UNIT DOSE: 150 MG , FREQUENCY TIME : 1 DAY
  12. ROPINIROLE [Concomitant]
     Active Substance: ROPINIROLE
     Indication: Product used for unknown indication
     Dosage: 4 MILLIGRAM DAILY; 2 MG, 1-0-1-0, UNIT DOSE: 4 MG , FREQUENCY TIME : 1 DAY, STRENGTH : 2 MG
  13. INSULIN LISPRO [Concomitant]
     Active Substance: INSULIN LISPRO
     Indication: Product used for unknown indication
     Dosage: 18 DOSAGE FORMS DAILY; 4-6-8-0, UNIT DOSE: 18 DF, FREQUENCY TIME : 1 DAY
  14. Magnesium Sandoz [Concomitant]
     Indication: Product used for unknown indication
     Dosage: 243 MILLIGRAM DAILY; 1-0-0-0, UNIT DOSE: 243 MG , FREQUENCY : OD , STRENGTH : 243 MG
  15. RAMIPRIL [Concomitant]
     Active Substance: RAMIPRIL
     Indication: Product used for unknown indication
     Dosage: 1.25 MILLIGRAM DAILY; 2.5 MG, 0.5-0-0-0, UNIT DOSE: 1.25 MG , FREQUENCY: OD, STRENGTH : 2.5 MG

REACTIONS (2)
  - Haematemesis [Unknown]
  - Dehydration [Unknown]
